FAERS Safety Report 6857981-6 (Version None)
Quarter: 2010Q3

REPORT INFORMATION
  Report Type: 
  Country: None (occurrence: None)
  Receive Date: 20100714
  Receipt Date: 20100707
  Transmission Date: 20110219
  Serious: Yes (Death)
  Sender: FDA-Public Use
  Company Number: JHP201000198

PATIENT
  Age: 28 Year
  Sex: Female

DRUGS (1)
  1. PITOCIN [Suspect]
     Indication: LABOUR INDUCTION
     Dates: start: 20081201, end: 20081201

REACTIONS (10)
  - BRADYCARDIA [None]
  - DRUG EXPOSURE DURING PREGNANCY [None]
  - HEPATIC RUPTURE [None]
  - HYPOTENSION [None]
  - JAUNDICE [None]
  - LOSS OF CONSCIOUSNESS [None]
  - PERITONEAL HAEMORRHAGE [None]
  - PULMONARY HAEMORRHAGE [None]
  - RALES [None]
  - SHOCK HAEMORRHAGIC [None]
